FAERS Safety Report 15658280 (Version 1)
Quarter: 2018Q4

REPORT INFORMATION
  Report Type: Report from Study
  Country: US (occurrence: US)
  Receive Date: 20181126
  Receipt Date: 20181126
  Transmission Date: 20190205
  Serious: Yes (Hospitalization, Other)
  Sender: FDA-Public Use
  Company Number: US-SAKK-2018SA317714AA

PATIENT
  Age: 54 Year
  Sex: Female
  Weight: 79.1 kg

DRUGS (1)
  1. ENOXAPARIN SODIUM. [Suspect]
     Active Substance: ENOXAPARIN SODIUM
     Dosage: 80 MG, BID

REACTIONS (3)
  - Abdominal pain [Unknown]
  - Pancreatic carcinoma metastatic [Unknown]
  - Jaundice [Unknown]
